FAERS Safety Report 5635221-3 (Version None)
Quarter: 2008Q1

REPORT INFORMATION
  Report Type: 
  Country: None (occurrence: None)
  Receive Date: 20080222
  Receipt Date: 20080222
  Transmission Date: 20080703
  Serious: Yes (Disabling, Other)
  Sender: FDA-Public Use
  Company Number: US-BOEHRINGER INGELHEIM GMBH, GERMANY-2006-BP-01943BP

PATIENT
  Sex: Male

DRUGS (6)
  1. AGGRENOX [Suspect]
     Indication: TRANSIENT ISCHAEMIC ATTACK
     Route: 048
     Dates: start: 20030220, end: 20060101
  2. AGGRENOX [Suspect]
     Indication: CEREBROVASCULAR ACCIDENT PROPHYLAXIS
     Route: 048
     Dates: start: 20060101
  3. SUSHAL [Concomitant]
     Route: 048
  4. VITAMIN CAP [Concomitant]
     Route: 048
  5. VITAMIN B-12 [Concomitant]
  6. MEMORACTIVE [Concomitant]

REACTIONS (16)
  - ASTHENIA [None]
  - BLINDNESS [None]
  - CHEST PAIN [None]
  - CONFUSIONAL STATE [None]
  - DIARRHOEA [None]
  - DIZZINESS [None]
  - DYSPNOEA [None]
  - EPIGASTRIC DISCOMFORT [None]
  - EPISTAXIS [None]
  - FALSE POSITIVE LABORATORY RESULT [None]
  - HYPOACUSIS [None]
  - PALPITATIONS [None]
  - RASH [None]
  - SYNCOPE [None]
  - TRANSIENT ISCHAEMIC ATTACK [None]
  - WHEEZING [None]
